FAERS Safety Report 7025115-3 (Version None)
Quarter: 2010Q4

REPORT INFORMATION
  Report Type: 
  Country: None (occurrence: None)
  Receive Date: 20101001
  Receipt Date: 20100921
  Transmission Date: 20110411
  Serious: Yes (Other)
  Sender: FDA-Public Use
  Company Number: AU-PFIZER INC-2010108465

PATIENT
  Age: 41 Year
  Sex: Male

DRUGS (3)
  1. ZELDOX [Suspect]
     Indication: SCHIZOPHRENIA
     Dosage: 80 MG, 2X/DAY
     Route: 048
     Dates: start: 20081101, end: 20100101
  2. CLOZARIL [Concomitant]
     Indication: SCHIZOPHRENIA
     Dosage: 350MG DAILY
  3. LUVOX [Concomitant]
     Indication: OBSESSIVE-COMPULSIVE DISORDER
     Dosage: 350MG DAILY
     Route: 048
     Dates: start: 20090101

REACTIONS (1)
  - DYSKINESIA [None]
